FAERS Safety Report 7095696-2 (Version None)
Quarter: 2010Q4

REPORT INFORMATION
  Report Type: 
  Country: None (occurrence: None)
  Receive Date: 20101111
  Receipt Date: 20101102
  Transmission Date: 20110411
  Serious: Yes (Other)
  Sender: FDA-Public Use
  Company Number: FR-AMGEN-FRANI2010002651

PATIENT

DRUGS (1)
  1. DARBEPOETIN ALFA [Suspect]
     Indication: ANAEMIA
     Dosage: UNK

REACTIONS (2)
  - CHEST PAIN [None]
  - HAEMODYNAMIC INSTABILITY [None]
